FAERS Safety Report 8063902-3 (Version None)
Quarter: 2012Q1

REPORT INFORMATION
  Report Type: 
  Country: None (occurrence: None)
  Receive Date: 20120123
  Receipt Date: 20120113
  Transmission Date: 20120608
  Serious: Yes (Hospitalization)
  Sender: FDA-Public Use
  Company Number: US-BAYER-2011-031906

PATIENT
  Age: 30 Year
  Sex: Female
  Weight: 136.5 kg

DRUGS (5)
  1. YAZ [Suspect]
     Dosage: UNK
     Dates: start: 20071201, end: 20080101
  2. INTRAVENOUS FLUIDS [Concomitant]
     Indication: DEHYDRATION
  3. KEFLEX [Concomitant]
  4. ZITHROMAX [Concomitant]
     Indication: UPPER RESPIRATORY TRACT INFECTION
  5. OLIVE LEAVES EXTRACT [Concomitant]

REACTIONS (5)
  - THROMBOPHLEBITIS SUPERFICIAL [None]
  - PHLEBITIS [None]
  - PAIN [None]
  - DEFORMITY [None]
  - ANXIETY [None]
